FAERS Safety Report 24948943 (Version 2)
Quarter: 2025Q1

REPORT INFORMATION
  Report Type: Spontaneous
  Country: CN (occurrence: CN)
  Receive Date: 20250210
  Receipt Date: 20250213
  Transmission Date: 20250409
  Serious: Yes (Life-Threatening, Hospitalization)
  Sender: PFIZER
  Company Number: CN-MLMSERVICE-20250127-PI376740-00270-1

PATIENT
  Age: 75 Year
  Sex: Female

DRUGS (4)
  1. METHYLPREDNISOLONE [Suspect]
     Active Substance: METHYLPREDNISOLONE
     Dosage: 40 MG, 1X/DAY
  2. IRBESARTAN [Concomitant]
     Active Substance: IRBESARTAN
     Indication: Hypertension
     Dosage: 150 MG, 1X/DAY
  3. ATORVASTATIN [Concomitant]
     Active Substance: ATORVASTATIN
     Indication: Lipids abnormal
     Dosage: 20 MG, 1X/DAY
  4. RIVAROXABAN [Concomitant]
     Active Substance: RIVAROXABAN
     Indication: Anticoagulant therapy
     Dosage: QD

REACTIONS (12)
  - Strongyloidiasis [Recovering/Resolving]
  - Parasitic pneumonia [Recovering/Resolving]
  - Enterococcal infection [Recovering/Resolving]
  - Candida infection [Recovering/Resolving]
  - Epstein-Barr virus infection [Recovering/Resolving]
  - Herpes simplex [Recovering/Resolving]
  - Cytomegalovirus infection [Recovering/Resolving]
  - Parainfluenzae virus infection [Recovering/Resolving]
  - Staphylococcal infection [Recovering/Resolving]
  - Neisseria infection [Recovering/Resolving]
  - Haematological infection [Recovering/Resolving]
  - Gastrointestinal haemorrhage [Recovering/Resolving]
